FAERS Safety Report 4736491-6 (Version None)
Quarter: 2005Q3

REPORT INFORMATION
  Report Type: 
  Country: None (occurrence: None)
  Receive Date: 20050804
  Receipt Date: 20050804
  Transmission Date: 20060218
  Serious: Yes (Disabling)
  Sender: FDA-Public Use
  Company Number: None

PATIENT
  Age: 64 Year
  Sex: Male
  Weight: 74.8435 kg

DRUGS (6)
  1. LIPITOR [Suspect]
     Indication: BLOOD CHOLESTEROL
     Dosage: 1 X DAILY ORAL  (047)
     Route: 048
     Dates: start: 20050506, end: 20050605
  2. LIPITOR [Suspect]
     Indication: HIGH DENSITY LIPOPROTEIN
     Dosage: 1 X DAILY ORAL  (047)
     Route: 048
     Dates: start: 20050506, end: 20050605
  3. LASIX [Concomitant]
  4. POTASSIUM CHLORIDE [Concomitant]
  5. COUMADIN [Concomitant]
  6. DILTIAZEM [Concomitant]

REACTIONS (18)
  - AMNESIA [None]
  - ASTHENIA [None]
  - BACK PAIN [None]
  - DISORIENTATION [None]
  - DIZZINESS [None]
  - FATIGUE [None]
  - HYPERHIDROSIS [None]
  - HYPOAESTHESIA [None]
  - MENTAL IMPAIRMENT [None]
  - MOBILITY DECREASED [None]
  - MYALGIA [None]
  - NECK PAIN [None]
  - NERVOUS SYSTEM DISORDER [None]
  - PAIN IN EXTREMITY [None]
  - PYREXIA [None]
  - SHOULDER PAIN [None]
  - TREMOR [None]
  - VERTIGO [None]
